FAERS Safety Report 14153955 (Version 2)
Quarter: 2017Q4

REPORT INFORMATION
  Report Type: Report from Study
  Country: CN (occurrence: CN)
  Receive Date: 20171102
  Receipt Date: 20171109
  Transmission Date: 20180321
  Serious: Yes (Hospitalization)
  Sender: FDA-Public Use
  Company Number: CN-EISAI MEDICAL RESEARCH-EC-2017-031593

PATIENT
  Age: 29 Year
  Sex: Female
  Weight: 49 kg

DRUGS (5)
  1. PERAMPANEL [Suspect]
     Active Substance: PERAMPANEL
     Dosage: EXTENSION
     Route: 048
     Dates: start: 201403, end: 20140428
  2. PERAMPANEL [Suspect]
     Active Substance: PERAMPANEL
     Route: 048
     Dates: start: 20140429, end: 20170922
  3. LAMOTRIGINE. [Concomitant]
     Active Substance: LAMOTRIGINE
  4. VALPROIC ACID. [Concomitant]
     Active Substance: VALPROIC ACID
  5. PERAMPANEL [Suspect]
     Active Substance: PERAMPANEL
     Indication: PARTIAL SEIZURES
     Dosage: CORE
     Route: 048
     Dates: start: 20131008, end: 201403

REACTIONS (2)
  - Abortion induced [Recovered/Resolved]
  - Exposure during pregnancy [Recovered/Resolved]

NARRATIVE: CASE EVENT DATE: 201707
